FAERS Safety Report 12988830 (Version 1)
Quarter: 2016Q4

REPORT INFORMATION
  Report Type: Spontaneous
  Country: RU (occurrence: RU)
  Receive Date: 20161130
  Receipt Date: 20161130
  Transmission Date: 20170207
  Serious: Yes (Hospitalization)
  Sender: FDA-Public Use
  Company Number: RU-B.I. PHARMACEUTICALS,INC./RIDGEFIELD-2016-BI-081565

PATIENT
  Age: 74 Year
  Sex: Male

DRUGS (1)
  1. TWYNSTA [Suspect]
     Active Substance: AMLODIPINE BESYLATE\TELMISARTAN
     Indication: HYPERTENSION
     Dosage: DAILY DOSE: 80/10 MG.
     Route: 065
     Dates: start: 20160401

REACTIONS (1)
  - Hypertensive crisis [Recovered/Resolved]
